FAERS Safety Report 4985875-X (Version None)
Quarter: 2006Q2

REPORT INFORMATION
  Report Type: 
  Country: None (occurrence: None)
  Receive Date: 20060428
  Receipt Date: 20060420
  Transmission Date: 20061013
  Serious: Yes (Hospitalization)
  Sender: FDA-Public Use
  Company Number: PHEH2006US05246

PATIENT
  Age: 75 Year
  Sex: Female

DRUGS (7)
  1. FORADIL [Suspect]
  2. ALBUTEROL [Concomitant]
  3. ATROVENT [Concomitant]
  4. VERAPAMIL [Concomitant]
  5. LASIX [Concomitant]
  6. POTASSIUM [Concomitant]
  7. OXYGEN [Concomitant]

REACTIONS (6)
  - CHRONIC OBSTRUCTIVE PULMONARY DISEASE [None]
  - CONFUSIONAL STATE [None]
  - DEVICE MALFUNCTION [None]
  - DRUG INEFFECTIVE [None]
  - DYSPNOEA [None]
  - TOTAL LUNG CAPACITY DECREASED [None]
